FAERS Safety Report 9894404 (Version 2)
Quarter: 2014Q2

REPORT INFORMATION
  Report Type: Spontaneous
  Country: US (occurrence: US)
  Receive Date: 20140213
  Receipt Date: 20140407
  Transmission Date: 20141212
  Serious: Yes (Other)
  Sender: FDA-Public Use
  Company Number: US-CELGENEUS-163-21880-14020864

PATIENT
  Age: 87 Year
  Sex: Male
  Weight: 78.54 kg

DRUGS (3)
  1. REVLIMID [Suspect]
     Indication: PLASMA CELL MYELOMA
     Dosage: 25 MILLIGRAM
     Route: 048
     Dates: start: 20130906
  2. REVLIMID [Suspect]
     Dosage: 20 MILLIGRAM
     Route: 048
     Dates: start: 201402
  3. POTASSIUM [Concomitant]
     Indication: PRODUCT USED FOR UNKNOWN INDICATION
     Route: 065

REACTIONS (3)
  - Haemoptysis [Unknown]
  - Wheezing [Unknown]
  - Productive cough [Unknown]
